FAERS Safety Report 8726091 (Version 2)
Quarter: 2012Q4

REPORT INFORMATION
  Report Type: 
  Country: US (occurrence: US)
  Receive Date: 20120816
  Receipt Date: 20120925
  Transmission Date: 20130627
  Serious: Yes (Life-Threatening, Hospitalization)
  Sender: FDA-Public Use
  Company Number: US-SANOFI-AVENTIS-2012SA057148

PATIENT
  Age: 42 Year
  Sex: Female
  Weight: 126.81 kg

DRUGS (10)
  1. LANTUS [Suspect]
     Indication: DIABETES
     Route: 058
     Dates: start: 2010
  2. LANTUS [Suspect]
     Indication: DIABETES
     Dosage: 10 or 5 units daily
     Route: 058
     Dates: start: 20120727, end: 20120905
  3. HUMALOG [Concomitant]
  4. LEVOTHYROXINE [Concomitant]
     Indication: HYPOTHYROIDISM
     Dates: start: 199506
  5. FUROSEMIDE [Concomitant]
     Indication: WATER RETENTION
     Dosage: 1/2 20 mg daily
     Dates: start: 201109
  6. ABILIFY [Concomitant]
     Indication: MOOD DISORDER NOS
     Dates: start: 201203
  7. FERROUS SULFATE [Concomitant]
     Indication: ANEMIC
     Dosage: 5g (325mg)
     Dates: start: 200408
  8. WARFARIN [Concomitant]
     Indication: CLOT BLOOD
     Dates: start: 201203
  9. WARFARIN [Concomitant]
     Indication: PULMONARY EMBOLISM
     Dates: start: 201203
  10. LISINOPRIL [Concomitant]
     Indication: BLOOD PRESSURE
     Dates: start: 200808

REACTIONS (7)
  - Respiratory distress [Recovered/Resolved]
  - Coma [Recovered/Resolved]
  - Blood glucose increased [Unknown]
  - Drug hypersensitivity [Recovered/Resolved]
  - Rash [Recovered/Resolved]
  - Chest pain [Recovered/Resolved]
  - Dyspnoea [Recovered/Resolved]
